FAERS Safety Report 20121616 (Version 2)
Quarter: 2021Q4

REPORT INFORMATION
  Report Type: Spontaneous
  Country: SA (occurrence: SA)
  Receive Date: 20211128
  Receipt Date: 20211214
  Transmission Date: 20220303
  Serious: Yes (Death)
  Sender: FDA-Public Use
  Company Number: SA-ELI_LILLY_AND_COMPANY-SA202111010063

PATIENT
  Age: 90 Year
  Sex: Female

DRUGS (6)
  1. CYMBALTA [Suspect]
     Active Substance: DULOXETINE HYDROCHLORIDE
     Indication: Diabetic neuropathy
     Dosage: 60 MG, DAILY
     Route: 065
     Dates: start: 20211115
  2. GLUCOPHAGE [Concomitant]
     Active Substance: METFORMIN HYDROCHLORIDE
     Indication: Diabetes mellitus
     Dosage: 500 MG, DAILY
     Route: 065
  3. LOSARTAN [Concomitant]
     Active Substance: LOSARTAN
     Indication: Hypertension
     Dosage: 50 MG, DAILY
     Route: 065
  4. VITAMIN B12 [Concomitant]
     Active Substance: CYANOCOBALAMIN
     Indication: Neuralgia
     Dosage: UNK, DAILY
     Route: 065
  5. ZINOXIMOR [Concomitant]
     Indication: Bronchitis
     Dosage: 500 MG, BID
     Route: 065
  6. KETONIL [CAPTOPRIL] [Concomitant]
     Indication: Cough
     Dosage: 5 ML, DAILY (AT BEDTIME)
     Route: 065

REACTIONS (2)
  - Respiratory depression [Fatal]
  - Hypersomnia [Unknown]

NARRATIVE: CASE EVENT DATE: 20211116
